FAERS Safety Report 5146269-X (Version None)
Quarter: 2006Q4

REPORT INFORMATION
  Report Type: 
  Country: None (occurrence: None)
  Receive Date: 20061102
  Receipt Date: 20061020
  Transmission Date: 20070319
  Serious: Yes (Hospitalization)
  Sender: FDA-Public Use
  Company Number: 2006126631

PATIENT
  Age: 88 Year
  Sex: Female
  Weight: 51 kg

DRUGS (1)
  1. AROMASIN [Suspect]
     Indication: BREAST CANCER
     Dosage: 25 MG (25 MG, 1 IN 1 D), ORAL
     Route: 048
     Dates: start: 20060908, end: 20060926

REACTIONS (4)
  - ANOREXIA [None]
  - LIVER DISORDER [None]
  - MALAISE [None]
  - PYREXIA [None]
